FAERS Safety Report 8012761-3 (Version None)
Quarter: 2011Q4

REPORT INFORMATION
  Report Type: 
  Country: None (occurrence: None)
  Receive Date: 20111229
  Receipt Date: 20111222
  Transmission Date: 20120403
  Serious: Yes (Death, Life-Threatening)
  Sender: FDA-Public Use
  Company Number: DE-PFIZER INC-2011314826

PATIENT
  Sex: Female

DRUGS (10)
  1. LEVOTHYROXINE [Concomitant]
  2. BISOPROLOL [Concomitant]
  3. ACETYLSALICYLIC ACID [Concomitant]
  4. TRIAMTERENE AND HYDROCHLOROTHIAZIDE [Concomitant]
  5. CANDESARTAN [Concomitant]
  6. CITALOPRAM [Concomitant]
  7. PANTOPRAZOLE [Concomitant]
  8. AMIODARONE HCL [Suspect]
     Dosage: 200 MG, UNK
     Route: 048
  9. DABIGATRAN ETEXILATE [Suspect]
     Dosage: 1 DF, 2X/DAY
     Route: 048
  10. ALLOPURINOL [Concomitant]

REACTIONS (3)
  - SUDDEN DEATH [None]
  - MYOCARDIAL INFARCTION [None]
  - SYNCOPE [None]
